FAERS Safety Report 16171537 (Version 5)
Quarter: 2019Q3

REPORT INFORMATION
  Report Type: Report from Study
  Country: US (occurrence: US)
  Receive Date: 20190408
  Receipt Date: 20190723
  Transmission Date: 20191004
  Serious: Yes (Other)
  Sender: FDA-Public Use
  Company Number: US-B.I. PHARMACEUTICALS,INC./RIDGEFIELD-2019-BI-006044

PATIENT
  Sex: Female

DRUGS (1)
  1. OFEV [Suspect]
     Active Substance: NINTEDANIB
     Indication: IDIOPATHIC PULMONARY FIBROSIS
     Route: 048
     Dates: start: 20181105, end: 201907

REACTIONS (12)
  - Vision blurred [Unknown]
  - Macular degeneration [Not Recovered/Not Resolved]
  - Rhinorrhoea [Not Recovered/Not Resolved]
  - Skin disorder [Unknown]
  - Musculoskeletal chest pain [Not Recovered/Not Resolved]
  - Cough [Unknown]
  - Rash macular [Not Recovered/Not Resolved]
  - Wheezing [Unknown]
  - Contusion [Not Recovered/Not Resolved]
  - Chest pain [Not Recovered/Not Resolved]
  - Dyspnoea [Unknown]
  - Diarrhoea [Recovered/Resolved]
